FAERS Safety Report 7331214-9 (Version None)
Quarter: 2011Q1

REPORT INFORMATION
  Report Type: 
  Country: None (occurrence: None)
  Receive Date: 20110304
  Receipt Date: 20110302
  Transmission Date: 20110831
  Serious: Yes (Other)
  Sender: FDA-Public Use
  Company Number: AU-PFIZER INC-2011045082

PATIENT
  Age: 4 Year
  Sex: Male

DRUGS (1)
  1. DOSTINEX [Suspect]
     Indication: HYPERPROLACTINAEMIA
     Dosage: UNK
     Route: 064

REACTIONS (3)
  - MENTAL RETARDATION [None]
  - DRUG EXPOSURE DURING PREGNANCY [None]
  - AUTISM SPECTRUM DISORDER [None]
